FAERS Safety Report 5981059-7 (Version None)
Quarter: 2008Q4

REPORT INFORMATION
  Report Type: 
  Country: None (occurrence: None)
  Receive Date: 20081202
  Receipt Date: 20081202
  Transmission Date: 20090506
  Serious: Yes (Hospitalization)
  Sender: FDA-Public Use
  Company Number: None

PATIENT
  Age: 62 Year
  Sex: Male
  Weight: 96.6162 kg

DRUGS (2)
  1. CETUXIMAB [Suspect]
     Dosage: 250 MG/M2 WEEKLY IV
     Route: 042
     Dates: start: 20080929
  2. PACLITAXEL [Suspect]
     Dosage: 80 MG/M2 WEEKLY IV
     Route: 042
     Dates: start: 20080929

REACTIONS (1)
  - URINARY RETENTION [None]
